FAERS Safety Report 26092065 (Version 1)
Quarter: 2025Q4

REPORT INFORMATION
  Report Type: Spontaneous
  Country: TW (occurrence: TW)
  Receive Date: 20251126
  Receipt Date: 20251126
  Transmission Date: 20260117
  Serious: Yes (Other)
  Sender: MERCK SHARP & DOHME LLC
  Company Number: TW-009507513-2351484

PATIENT
  Age: 62 Year
  Sex: Female

DRUGS (5)
  1. PEMBROLIZUMAB [Suspect]
     Active Substance: PEMBROLIZUMAB
     Indication: Triple negative breast cancer
     Dosage: NEOADJUVANT PEMBRO-TC
     Dates: start: 20231120
  2. PEMBROLIZUMAB [Suspect]
     Active Substance: PEMBROLIZUMAB
     Indication: Triple negative breast cancer
     Dosage: NEOADJUVANT PEMBRO-EC
     Dates: start: 20240225, end: 20240507
  3. PEMBROLIZUMAB [Suspect]
     Active Substance: PEMBROLIZUMAB
     Indication: Triple negative breast cancer
     Dosage: 9 CYCLES OF ADJUVANT PEMBROLIZUMAB
     Dates: start: 20240612, end: 20241222
  4. TETRACYCLINE HYDROCHLORIDE [Suspect]
     Active Substance: TETRACYCLINE HYDROCHLORIDE
     Indication: Triple negative breast cancer
     Dates: start: 20231120
  5. TETRACYCLINE HYDROCHLORIDE [Suspect]
     Active Substance: TETRACYCLINE HYDROCHLORIDE
     Indication: Triple negative breast cancer
     Dates: start: 20231120

REACTIONS (3)
  - Neutropenia [Unknown]
  - Alopecia [Unknown]
  - Rash [Unknown]
